FAERS Safety Report 8889953 (Version 1)
Quarter: 2012Q4

REPORT INFORMATION
  Report Type: Report from Study
  Country: CA (occurrence: CA)
  Receive Date: 20121107
  Receipt Date: 20121107
  Transmission Date: 20130627
  Serious: Yes (Other)
  Sender: FDA-Public Use
  Company Number: CA-JNJFOC-20121015081

PATIENT
  Age: 53 None
  Sex: Male
  Weight: 69 kg

DRUGS (1)
  1. REMICADE [Suspect]
     Indication: COLITIS ULCERATIVE
     Route: 042
     Dates: start: 20121012

REACTIONS (5)
  - Haemoglobin abnormal [Unknown]
  - Hyperhidrosis [Not Recovered/Not Resolved]
  - Fatigue [Not Recovered/Not Resolved]
  - Rash erythematous [Not Recovered/Not Resolved]
  - Pruritus [Not Recovered/Not Resolved]
